FAERS Safety Report 9303879 (Version 1)
Quarter: 2013Q2

REPORT INFORMATION
  Report Type: Spontaneous
  Country: US (occurrence: US)
  Receive Date: 20130522
  Receipt Date: 20130522
  Transmission Date: 20140414
  Serious: No
  Sender: FDA-Public Use
  Company Number: US-009507513-1305USA002101

PATIENT
  Sex: Female

DRUGS (2)
  1. CORICIDIN HCP MAXIMUM STRENGTH FLU [Suspect]
     Indication: PRODUCT USED FOR UNKNOWN INDICATION
     Dosage: 1 DF, UNKNOWN
     Route: 048
     Dates: start: 20130416, end: 20130416
  2. CORICIDIN HCP MAXIMUM STRENGTH FLU [Suspect]
     Dosage: 1 DF, UNK
     Route: 048
     Dates: start: 20130417

REACTIONS (2)
  - Dizziness [Unknown]
  - Therapeutic product ineffective [Unknown]
